FAERS Safety Report 24701025 (Version 1)
Quarter: 2024Q4

REPORT INFORMATION
  Report Type: Other
  Country: US (occurrence: US)
  Receive Date: 20241205
  Receipt Date: 20241205
  Transmission Date: 20250115
  Serious: Yes (Other)
  Sender: NUVO PHARMACEUTICALS
  Company Number: US-Nuvo Pharmaceuticals Inc-2166539

PATIENT
  Age: 42 Year
  Sex: Female

DRUGS (9)
  1. PHENTERMINE HYDROCHLORIDE [Suspect]
     Active Substance: PHENTERMINE HYDROCHLORIDE
     Indication: Weight decreased
  2. TOPIRAMATE [Suspect]
     Active Substance: TOPIRAMATE
  3. DACARBAZINE [Concomitant]
     Active Substance: DACARBAZINE
  4. VINBLASTINE SULFATE [Concomitant]
     Active Substance: VINBLASTINE SULFATE
  5. ADRIAMYCIN [Concomitant]
     Active Substance: DOXORUBICIN HYDROCHLORIDE
  6. PEMBROLIZUMAB [Concomitant]
     Active Substance: PEMBROLIZUMAB
  7. CISPLATIN [Concomitant]
     Active Substance: CISPLATIN
  8. CYTARABINE [Concomitant]
     Active Substance: CYTARABINE
  9. DEXAMETHASONE [Concomitant]
     Active Substance: DEXAMETHASONE

REACTIONS (2)
  - Drug-induced liver injury [Recovering/Resolving]
  - Vanishing bile duct syndrome [Recovering/Resolving]
